FAERS Safety Report 22881617 (Version 2)
Quarter: 2023Q4

REPORT INFORMATION
  Report Type: Spontaneous
  Country: US (occurrence: US)
  Receive Date: 20230830
  Receipt Date: 20231128
  Transmission Date: 20240110
  Serious: No
  Sender: FDA-Public Use
  Company Number: US-BRISTOL-MYERS SQUIBB COMPANY-2023-120148

PATIENT
  Age: 47 Year
  Sex: Female

DRUGS (1)
  1. ORENCIA [Suspect]
     Active Substance: ABATACEPT
     Indication: Product used for unknown indication
     Dosage: FREQUENCY: INJECT 1 SYRINGE SUBCUTANEOUSLY ONCE A WEEK
     Route: 058

REACTIONS (2)
  - Pain in extremity [Unknown]
  - Joint effusion [Unknown]

NARRATIVE: CASE EVENT DATE: 20230727
